FAERS Safety Report 8338209-7 (Version None)
Quarter: 2012Q2

REPORT INFORMATION
  Report Type: 
  Country: None (occurrence: None)
  Receive Date: 20120504
  Receipt Date: 20120427
  Transmission Date: 20120825
  Serious: No
  Sender: FDA-Public Use
  Company Number: US-B.I. PHARMACEUTICALS,INC./RIDGEFIELD-2012-BP-09685BP

PATIENT
  Sex: Female

DRUGS (7)
  1. PRADAXA [Suspect]
     Indication: ATRIAL FIBRILLATION
     Dosage: 300 MG
     Route: 048
     Dates: start: 20110401
  2. VICODIN [Concomitant]
     Indication: ARTHRITIS
     Route: 048
  3. DILTIAZEM [Concomitant]
     Indication: ATRIAL FIBRILLATION
     Route: 048
  4. POTASSIUM CHLORIDE [Concomitant]
     Indication: ROUTINE HEALTH MAINTENANCE
     Route: 048
  5. PROTONIX [Concomitant]
     Indication: GASTROOESOPHAGEAL REFLUX DISEASE
     Dosage: 20 MG
     Route: 048
  6. WELLBUTRIN [Concomitant]
     Indication: DEPRESSION
     Route: 048
  7. MOTRIN [Concomitant]
     Indication: ARTHRITIS
     Route: 048

REACTIONS (3)
  - TRICHORRHEXIS [None]
  - ALOPECIA [None]
  - OEDEMA PERIPHERAL [None]
